FAERS Safety Report 7992998-X (Version None)
Quarter: 2011Q4

REPORT INFORMATION
  Report Type: 
  Country: None (occurrence: None)
  Receive Date: 20111219
  Receipt Date: 20110627
  Transmission Date: 20120403
  Serious: Yes (Other)
  Sender: FDA-Public Use
  Company Number: US-ASTRAZENECA-2011SE38426

PATIENT
  Sex: Female

DRUGS (2)
  1. SIMVASTATIN [Suspect]
  2. CRESTOR [Suspect]
     Route: 048

REACTIONS (2)
  - LETHARGY [None]
  - MUSCULAR WEAKNESS [None]
